FAERS Safety Report 15616534 (Version 1)
Quarter: 2018Q4

REPORT INFORMATION
  Report Type: Spontaneous
  Country: IT (occurrence: IT)
  Receive Date: 20181114
  Receipt Date: 20181114
  Transmission Date: 20190205
  Serious: Yes (Other)
  Sender: FDA-Public Use
  Company Number: PHHY2018IT137365

PATIENT
  Age: 6 Year
  Sex: Female
  Weight: 28 kg

DRUGS (2)
  1. TEGRETOL [Suspect]
     Active Substance: CARBAMAZEPINE
     Dosage: 700 MG, QD
     Route: 048
     Dates: start: 20180607
  2. TEGRETOL [Suspect]
     Active Substance: CARBAMAZEPINE
     Indication: EPILEPSY
     Dosage: 700 MG, QD
     Route: 048
     Dates: start: 20180601

REACTIONS (4)
  - Epilepsy [Recovering/Resolving]
  - Clonus [Recovering/Resolving]
  - Loss of consciousness [Recovering/Resolving]
  - Drug ineffective [Recovering/Resolving]

NARRATIVE: CASE EVENT DATE: 20180608
